FAERS Safety Report 16212496 (Version 2)
Quarter: 2019Q2

REPORT INFORMATION
  Report Type: Report from Study
  Country: DE (occurrence: DE)
  Receive Date: 20190418
  Receipt Date: 20190422
  Transmission Date: 20190711
  Serious: Yes (Hospitalization)
  Sender: FDA-Public Use
  Company Number: DE-SA-2019SA077501

PATIENT
  Age: 64 Year
  Sex: Male
  Weight: 80 kg

DRUGS (8)
  1. BLINDED AFLIBERCEPT [Suspect]
     Active Substance: AFLIBERCEPT
     Dosage: 320 MG, QCY
     Route: 042
     Dates: start: 20190215, end: 20190215
  2. FOLINIC ACID [Suspect]
     Active Substance: LEUCOVORIN
     Indication: RECTAL CANCER
     Dosage: 700 MG, QCY
     Route: 042
     Dates: start: 20190304, end: 20190304
  3. FOLINIC ACID [Suspect]
     Active Substance: LEUCOVORIN
     Dosage: 700 MG, QCY
     Route: 042
     Dates: start: 20190215, end: 20190215
  4. OXALIPLATIN. [Suspect]
     Active Substance: OXALIPLATIN
     Indication: RECTAL CANCER
     Dosage: 170 MG, QCY
     Route: 042
     Dates: start: 20190318, end: 20190318
  5. BLINDED AFLIBERCEPT [Suspect]
     Active Substance: AFLIBERCEPT
     Indication: RECTAL CANCER
     Dosage: 320 MG, QCY
     Route: 042
     Dates: start: 20190318, end: 20190318
  6. FLUOROURACIL. [Suspect]
     Active Substance: FLUOROURACIL
     Dosage: 5600 MG, QCY
     Route: 042
     Dates: start: 20190215, end: 20190215
  7. OXALIPLATIN. [Suspect]
     Active Substance: OXALIPLATIN
     Dosage: 170 MG, QCY
     Route: 042
     Dates: start: 20190215, end: 20190215
  8. FLUOROURACIL. [Suspect]
     Active Substance: FLUOROURACIL
     Indication: RECTAL CANCER
     Dosage: 5600 MG, QCY
     Route: 042
     Dates: start: 20190305, end: 20190305

REACTIONS (2)
  - Hypertension [Recovered/Resolved]
  - Proteinuria [Recovered/Resolved]

NARRATIVE: CASE EVENT DATE: 20190318
